FAERS Safety Report 4391243-4 (Version None)
Quarter: 2004Q2

REPORT INFORMATION
  Report Type: 
  Country: None (occurrence: None)
  Receive Date: 20040621
  Receipt Date: 20031017
  Transmission Date: 20050107
  Serious: Yes (Hospitalization, Other)
  Sender: FDA-Public Use
  Company Number: USA-2002-0003287

PATIENT
  Age: 41 Year
  Sex: Male
  Weight: 103.4 kg

DRUGS (8)
  1. OXYCONTIN [Suspect]
     Indication: PAIN
     Dosage: 20 MG, Q12H PRN, ORAL
     Route: 048
  2. FLAGYL [Concomitant]
  3. PREDNISONE [Concomitant]
  4. IMURAN [Concomitant]
  5. ACTONEL [Concomitant]
  6. XANAX [Concomitant]
  7. VEETIDS [Concomitant]
  8. FLEXERIL [Concomitant]

REACTIONS (10)
  - AGITATION [None]
  - ANXIETY [None]
  - DEPRESSION [None]
  - DRUG DEPENDENCE [None]
  - DRUG WITHDRAWAL SYNDROME [None]
  - HALLUCINATION, VISUAL [None]
  - HOT FLUSH [None]
  - NAUSEA [None]
  - PAIN [None]
  - TACHYCARDIA [None]
